FAERS Safety Report 24267231 (Version 3)
Quarter: 2024Q4

REPORT INFORMATION
  Report Type: Spontaneous
  Country: US (occurrence: US)
  Receive Date: 20240830
  Receipt Date: 20241015
  Transmission Date: 20250115
  Serious: No
  Sender: VIIV
  Company Number: US-ViiV Healthcare Limited-114478

PATIENT
  Age: 28 Year
  Sex: Male

DRUGS (5)
  1. CABENUVA [Suspect]
     Active Substance: CABOTEGRAVIR\RILPIVIRINE
     Indication: Product used for unknown indication
     Dosage: UNK, 600/900
     Route: 030
     Dates: start: 20240521
  2. CABENUVA [Suspect]
     Active Substance: CABOTEGRAVIR\RILPIVIRINE
  3. CABENUVA [Suspect]
     Active Substance: CABOTEGRAVIR\RILPIVIRINE
  4. CABENUVA [Suspect]
     Active Substance: CABOTEGRAVIR\RILPIVIRINE
     Indication: Product used for unknown indication
     Dosage: UNK, 600/900
     Route: 030
  5. BIKTARVY [Concomitant]
     Active Substance: BICTEGRAVIR SODIUM\EMTRICITABINE\TENOFOVIR ALAFENAMIDE FUMARATE
     Indication: Product used for unknown indication
     Dosage: UNK

REACTIONS (11)
  - Dizziness [Recovered/Resolved]
  - Heart rate increased [Recovered/Resolved]
  - Injection site pain [Recovered/Resolved]
  - Abdominal pain upper [Recovered/Resolved]
  - Nausea [Recovered/Resolved]
  - Dyspnoea [Recovered/Resolved]
  - Urticaria [Recovered/Resolved]
  - Rash macular [Recovered/Resolved]
  - Chest pain [Recovered/Resolved]
  - Rash [Recovered/Resolved]
  - Product use in unapproved therapeutic environment [Unknown]

NARRATIVE: CASE EVENT DATE: 20240521
